FAERS Safety Report 10994272 (Version 1)
Quarter: 2015Q2

REPORT INFORMATION
  Report Type: Spontaneous
  Country: DE (occurrence: DE)
  Receive Date: 20150407
  Receipt Date: 20150407
  Transmission Date: 20150821
  Serious: Yes (Other)
  Sender: FDA-Public Use
  Company Number: DE-CIPLA LTD.-2015DE02646

PATIENT

DRUGS (8)
  1. FOLIC ACID. [Suspect]
     Active Substance: FOLIC ACID
     Indication: ADENOCARCINOMA PANCREAS
  2. OXALIPLATIN. [Suspect]
     Active Substance: OXALIPLATIN
     Indication: ADENOCARCINOMA PANCREAS
     Dosage: 72 CYCLES
  3. IRINOTECAN [Suspect]
     Active Substance: IRINOTECAN
     Indication: METASTASES TO LIVER
  4. IRINOTECAN [Suspect]
     Active Substance: IRINOTECAN
     Indication: ADENOCARCINOMA PANCREAS
     Dosage: 72 CYCLES
  5. FLUOROURACIL. [Suspect]
     Active Substance: FLUOROURACIL
     Indication: METASTASES TO LIVER
  6. OXALIPLATIN. [Suspect]
     Active Substance: OXALIPLATIN
     Indication: METASTASES TO LIVER
  7. FLUOROURACIL. [Suspect]
     Active Substance: FLUOROURACIL
     Indication: ADENOCARCINOMA PANCREAS
     Dosage: 72 CYCLES
  8. FOLIC ACID. [Suspect]
     Active Substance: FOLIC ACID
     Indication: METASTASES TO LIVER

REACTIONS (6)
  - Metastases to liver [Recovered/Resolved]
  - Mucosal inflammation [Unknown]
  - Thrombocytopenia [Unknown]
  - Neutropenia [Unknown]
  - Polyneuropathy [Recovering/Resolving]
  - Leukopenia [Unknown]
